FAERS Safety Report 7342052-5 (Version None)
Quarter: 2011Q1

REPORT INFORMATION
  Report Type: 
  Country: None (occurrence: None)
  Receive Date: 20110309
  Receipt Date: 20110128
  Transmission Date: 20110831
  Serious: Yes (Death, Hospitalization, Other)
  Sender: FDA-Public Use
  Company Number: US-BAXTER-2010BH024365

PATIENT
  Age: 65 Year
  Sex: Female
  Weight: 44 kg

DRUGS (65)
  1. HEPARIN SODIUM INJECTION [Suspect]
     Indication: HAEMODIALYSIS
     Route: 040
     Dates: start: 20080101, end: 20080101
  2. HEPARIN SODIUM INJECTION [Suspect]
     Route: 065
     Dates: start: 20080101, end: 20080101
  3. HEPARIN SODIUM INJECTION [Suspect]
     Route: 065
     Dates: start: 20071231
  4. FLORINEF ACETATE [Concomitant]
     Indication: PRODUCT USED FOR UNKNOWN INDICATION
     Route: 065
  5. VALSARTAN [Concomitant]
     Indication: PRODUCT USED FOR UNKNOWN INDICATION
     Route: 048
  6. LOPRESSOR [Concomitant]
     Indication: PRODUCT USED FOR UNKNOWN INDICATION
     Route: 065
  7. HEPARIN SODIUM INJECTION [Suspect]
     Indication: THROMBOSIS PROPHYLAXIS
     Route: 040
     Dates: start: 20080101, end: 20080101
  8. HEPARIN SODIUM INJECTION [Suspect]
     Route: 065
     Dates: start: 20080201, end: 20080201
  9. HEPARIN SODIUM INJECTION [Suspect]
     Route: 040
     Dates: start: 20071230
  10. HEPARIN SODIUM INJECTION [Suspect]
     Route: 040
     Dates: start: 20071230
  11. HEPARIN SODIUM INJECTION [Suspect]
     Route: 040
     Dates: start: 20071230
  12. HEPARIN SODIUM INJECTION [Suspect]
     Route: 040
     Dates: start: 20071230
  13. HEPARIN SODIUM INJECTION [Suspect]
     Route: 042
     Dates: start: 20080110
  14. VANCOMYCIN [Concomitant]
     Indication: PRODUCT USED FOR UNKNOWN INDICATION
     Route: 042
  15. HEPARIN SODIUM INJECTION [Suspect]
     Route: 041
     Dates: start: 20071230, end: 20080109
  16. HEPARIN SODIUM INJECTION [Suspect]
     Route: 065
     Dates: start: 20071231
  17. HEPARIN SODIUM INJECTION [Suspect]
     Route: 010
     Dates: start: 20080115
  18. HEPARIN SODIUM INJECTION [Suspect]
     Route: 010
     Dates: start: 20080117
  19. ASPIRIN [Concomitant]
     Indication: PRODUCT USED FOR UNKNOWN INDICATION
     Route: 048
  20. HEPARIN SODIUM INJECTION [Suspect]
     Route: 065
     Dates: start: 20080101, end: 20080101
  21. HEPARIN SODIUM INJECTION [Suspect]
     Route: 040
     Dates: start: 20080201, end: 20080201
  22. HEPARIN SODIUM INJECTION [Suspect]
     Route: 040
     Dates: start: 20071230
  23. HEPARIN SODIUM INJECTION [Suspect]
     Route: 042
     Dates: start: 20080110
  24. CYPROHEPTADINE HCL [Concomitant]
     Indication: PRODUCT USED FOR UNKNOWN INDICATION
     Route: 065
  25. LEVOPHED [Concomitant]
     Indication: PRODUCT USED FOR UNKNOWN INDICATION
     Route: 041
  26. PHENERGAN [Concomitant]
     Indication: PRODUCT USED FOR UNKNOWN INDICATION
     Route: 048
  27. HEPARIN SODIUM INJECTION [Suspect]
     Indication: CATHETER PLACEMENT
     Route: 040
     Dates: start: 20080101, end: 20080101
  28. HEPARIN SODIUM INJECTION [Suspect]
     Route: 065
     Dates: start: 20080101, end: 20080101
  29. HEPARIN SODIUM INJECTION [Suspect]
     Route: 065
     Dates: start: 20080201, end: 20080201
  30. HEPARIN SODIUM INJECTION [Suspect]
     Route: 010
     Dates: start: 20071224
  31. HEPARIN SODIUM INJECTION [Suspect]
     Route: 040
     Dates: start: 20071230
  32. HEPARIN SODIUM INJECTION [Suspect]
     Route: 040
     Dates: start: 20071230
  33. HEPARIN SODIUM INJECTION [Suspect]
     Route: 041
     Dates: start: 20071230, end: 20080109
  34. HEPARIN SODIUM INJECTION [Suspect]
     Route: 041
     Dates: start: 20071230, end: 20080109
  35. HEPARIN SODIUM INJECTION [Suspect]
     Route: 065
     Dates: start: 20071231
  36. HEPARIN SODIUM INJECTION [Suspect]
     Route: 065
     Dates: start: 20071231
  37. HEPARIN SODIUM INJECTION [Suspect]
     Route: 010
     Dates: start: 20080115
  38. PHOSLO [Concomitant]
     Indication: PRODUCT USED FOR UNKNOWN INDICATION
     Route: 065
  39. WARFARIN SODIUM [Concomitant]
     Indication: PRODUCT USED FOR UNKNOWN INDICATION
     Route: 065
  40. LEXAPRO [Concomitant]
     Indication: PRODUCT USED FOR UNKNOWN INDICATION
     Route: 065
  41. HEPARIN SODIUM INJECTION [Suspect]
     Route: 040
     Dates: start: 20080201, end: 20080201
  42. HEPARIN SODIUM INJECTION [Suspect]
     Route: 010
     Dates: start: 20080115
  43. HEPARIN SODIUM INJECTION [Suspect]
     Route: 010
     Dates: start: 20080117
  44. HEPARIN SODIUM INJECTION [Suspect]
     Route: 010
     Dates: start: 20080117
  45. GENTAMICIN [Concomitant]
     Indication: PRODUCT USED FOR UNKNOWN INDICATION
     Route: 042
  46. FAMOTIDINE [Concomitant]
     Indication: PRODUCT USED FOR UNKNOWN INDICATION
     Route: 048
  47. NOVOLOG [Concomitant]
     Indication: PRODUCT USED FOR UNKNOWN INDICATION
     Route: 065
  48. FLAGYL [Concomitant]
     Indication: PRODUCT USED FOR UNKNOWN INDICATION
     Route: 048
  49. HEPARIN SODIUM INJECTION [Suspect]
     Route: 065
     Dates: start: 20080101, end: 20080101
  50. HEPARIN SODIUM INJECTION [Suspect]
     Route: 040
     Dates: start: 20080201, end: 20080201
  51. HEPARIN SODIUM INJECTION [Suspect]
     Route: 065
     Dates: start: 20080201, end: 20080201
  52. HEPARIN SODIUM INJECTION [Suspect]
     Route: 041
     Dates: start: 20071230, end: 20080109
  53. HEPARIN SODIUM INJECTION [Suspect]
     Route: 010
     Dates: start: 20080117
  54. HEPARIN SODIUM INJECTION [Suspect]
     Indication: ARTERIOVENOUS GRAFT
     Route: 040
     Dates: start: 20080101, end: 20080101
  55. HEPARIN SODIUM INJECTION [Suspect]
     Route: 040
     Dates: start: 20080201, end: 20080201
  56. HEPARIN SODIUM INJECTION [Suspect]
     Route: 065
     Dates: start: 20080201, end: 20080201
  57. HEPARIN SODIUM INJECTION [Suspect]
     Route: 010
     Dates: start: 20071224
  58. HEPARIN SODIUM INJECTION [Suspect]
     Route: 010
     Dates: start: 20071224
  59. HEPARIN SODIUM INJECTION [Suspect]
     Route: 010
     Dates: start: 20071224
  60. HEPARIN SODIUM INJECTION [Suspect]
     Route: 040
     Dates: start: 20071230
  61. HEPARIN SODIUM INJECTION [Suspect]
     Route: 042
     Dates: start: 20080110
  62. HEPARIN SODIUM INJECTION [Suspect]
     Route: 042
     Dates: start: 20080110
  63. HEPARIN SODIUM INJECTION [Suspect]
     Route: 010
     Dates: start: 20080115
  64. PROTONIX [Concomitant]
     Indication: PRODUCT USED FOR UNKNOWN INDICATION
     Route: 065
  65. HYDROXYZINE [Concomitant]
     Indication: PRODUCT USED FOR UNKNOWN INDICATION
     Route: 048

REACTIONS (8)
  - GENERALISED OEDEMA [None]
  - DEPRESSED LEVEL OF CONSCIOUSNESS [None]
  - RESPIRATORY FAILURE [None]
  - HYPOTENSION [None]
  - SEPSIS [None]
  - ASCITES [None]
  - CARDIAC ARREST [None]
  - RESPIRATORY ARREST [None]
